FAERS Safety Report 18435880 (Version 1)
Quarter: 2020Q4

REPORT INFORMATION
  Report Type: Spontaneous
  Country: US (occurrence: US)
  Receive Date: 20201028
  Receipt Date: 20201028
  Transmission Date: 20210114
  Serious: No
  Sender: FDA-Public Use
  Company Number: None

PATIENT
  Age: 21 Year
  Sex: Female
  Weight: 80.29 kg

DRUGS (1)
  1. NEXPLANON [Suspect]
     Active Substance: ETONOGESTREL

REACTIONS (6)
  - Fatigue [None]
  - Gait disturbance [None]
  - Nausea [None]
  - Dizziness [None]
  - Constipation [None]
  - Eating disorder [None]

NARRATIVE: CASE EVENT DATE: 20201019
